FAERS Safety Report 11223118 (Version 2)
Quarter: 2015Q3

REPORT INFORMATION
  Report Type: Spontaneous
  Country: CN (occurrence: CN)
  Receive Date: 20150626
  Receipt Date: 20150722
  Transmission Date: 20151125
  Serious: Yes (Hospitalization, Other)
  Sender: FDA-Public Use
  Company Number: CN-ASTRAZENECA-2015SE61380

PATIENT
  Age: 81 Year
  Sex: Female

DRUGS (10)
  1. INTRAVENOUS DRIP OF INJECTION [Concomitant]
     Indication: ABDOMINAL DISCOMFORT
  2. NEXIUM [Suspect]
     Active Substance: ESOMEPRAZOLE MAGNESIUM
     Indication: GASTROOESOPHAGEAL REFLUX DISEASE
     Route: 048
  3. NEXIUM [Suspect]
     Active Substance: ESOMEPRAZOLE MAGNESIUM
     Indication: GASTROOESOPHAGEAL REFLUX DISEASE
     Route: 048
  4. NEXIUM [Suspect]
     Active Substance: ESOMEPRAZOLE MAGNESIUM
     Indication: GASTROOESOPHAGEAL REFLUX DISEASE
     Route: 048
     Dates: end: 20150117
  5. OMEPRAZOLE. [Suspect]
     Active Substance: OMEPRAZOLE
     Dosage: TWO PILLS ONCE
     Route: 048
     Dates: start: 20150618, end: 20150619
  6. GINKGO LEAF [Concomitant]
  7. BIFIDOBACTERIUM QUADRUPLE LIVING BACTERIUM [Concomitant]
  8. NEXIUM [Suspect]
     Active Substance: ESOMEPRAZOLE MAGNESIUM
     Indication: GASTROOESOPHAGEAL REFLUX DISEASE
     Route: 048
  9. PLENDIL [Concomitant]
     Active Substance: FELODIPINE
  10. TWO DRUGS UNSPECIFIED [Concomitant]

REACTIONS (7)
  - Abdominal distension [Recovering/Resolving]
  - Colitis [Unknown]
  - Chronic gastritis [Unknown]
  - Gastrooesophageal reflux disease [Unknown]
  - Drug ineffective [Unknown]
  - Oesophageal haemorrhage [Recovered/Resolved]
  - Intentional product misuse [Unknown]

NARRATIVE: CASE EVENT DATE: 201405
